FAERS Safety Report 9828376 (Version 3)
Quarter: 2014Q2

REPORT INFORMATION
  Report Type: Spontaneous
  Country: JP (occurrence: JP)
  Receive Date: 20140117
  Receipt Date: 20140410
  Transmission Date: 20141212
  Serious: Yes (Other)
  Sender: FDA-Public Use
  Company Number: JP-GLAXOSMITHKLINE-B0960998A

PATIENT
  Age: 69 Year
  Sex: Female
  Weight: 42 kg

DRUGS (9)
  1. REVOLADE [Suspect]
     Indication: IMMUNE THROMBOCYTOPENIC PURPURA
     Route: 048
     Dates: start: 20110510, end: 20111205
  2. REVOLADE [Suspect]
     Indication: IMMUNE THROMBOCYTOPENIC PURPURA
     Route: 048
     Dates: start: 20111206, end: 20120409
  3. REVOLADE [Suspect]
     Indication: IMMUNE THROMBOCYTOPENIC PURPURA
     Route: 048
     Dates: start: 20120410
  4. PREDONINE [Suspect]
     Indication: IMMUNE THROMBOCYTOPENIC PURPURA
     Route: 048
  5. PREDONINE [Suspect]
     Indication: IMMUNE THROMBOCYTOPENIC PURPURA
     Route: 048
  6. DANAZOL [Concomitant]
     Indication: IMMUNE THROMBOCYTOPENIC PURPURA
     Route: 048
     Dates: start: 20110531
  7. TAKEPRON [Concomitant]
     Indication: PROPHYLAXIS
     Route: 048
  8. EURODIN [Concomitant]
     Route: 048
     Dates: start: 20110517, end: 20120410
  9. BONALON [Concomitant]
     Indication: PROPHYLAXIS
     Route: 048

REACTIONS (1)
  - Pulmonary embolism [Recovered/Resolved]
